FAERS Safety Report 5577295-4 (Version None)
Quarter: 2007Q4

REPORT INFORMATION
  Report Type: 
  Country: None (occurrence: None)
  Receive Date: 20071228
  Receipt Date: 20071220
  Transmission Date: 20080405
  Serious: Yes (Hospitalization)
  Sender: FDA-Public Use
  Company Number: US-PFIZER INC-2007104590

PATIENT
  Sex: Female
  Weight: 52.6 kg

DRUGS (12)
  1. SUNITINIB MALATE [Suspect]
     Indication: RENAL CELL CARCINOMA STAGE UNSPECIFIED
     Route: 048
  2. SULAR [Concomitant]
     Route: 048
     Dates: start: 20061001, end: 20071213
  3. CLONIDINE [Concomitant]
     Route: 048
     Dates: start: 20060801
  4. PREMARIN [Concomitant]
     Route: 048
     Dates: start: 19810101
  5. CO-Q-10 [Concomitant]
     Route: 048
     Dates: start: 19970101
  6. CALTRATE [Concomitant]
     Route: 048
     Dates: start: 19820101
  7. GLUCOSAMINE [Concomitant]
     Route: 048
     Dates: start: 19970101
  8. CHONDROITIN [Concomitant]
     Route: 048
     Dates: start: 19970101
  9. METHYLSULFONYLMETHANE [Concomitant]
     Route: 048
     Dates: start: 19970101
  10. VITAMIN CAP [Concomitant]
     Route: 048
     Dates: start: 19600101
  11. DRIXORAL [Concomitant]
     Route: 048
     Dates: start: 20050101
  12. MARINOL [Concomitant]
     Route: 048
     Dates: start: 20071204

REACTIONS (1)
  - ATRIAL FIBRILLATION [None]
